FAERS Safety Report 6884637-6 (Version None)
Quarter: 2010Q3

REPORT INFORMATION
  Report Type: 
  Country: None (occurrence: None)
  Receive Date: 20100729
  Receipt Date: 20070719
  Transmission Date: 20110219
  Serious: Yes (Other)
  Sender: FDA-Public Use
  Company Number: US-PFIZER INC-2007059589

PATIENT
  Sex: Female
  Weight: 63.636 kg

DRUGS (4)
  1. CELEBREX [Suspect]
     Indication: OSTEOARTHRITIS
     Dates: start: 20070615
  2. LYRICA [Concomitant]
  3. TOPROL-XL [Concomitant]
  4. ESTRATEST [Concomitant]

REACTIONS (3)
  - BURNING SENSATION [None]
  - OEDEMA [None]
  - WEIGHT INCREASED [None]
